FAERS Safety Report 9941843 (Version 2)
Quarter: 2014Q1

REPORT INFORMATION
  Report Type: Report from Study
  Country: US (occurrence: US)
  Receive Date: 20140303
  Receipt Date: 20140303
  Transmission Date: 20141002
  Serious: No
  Sender: FDA-Public Use
  Company Number: US-ABBVIE-12P-163-1002101-00

PATIENT
  Age: 78 Year
  Sex: Female
  Weight: 86.26 kg

DRUGS (9)
  1. HUMIRA [Suspect]
     Indication: RHEUMATOID ARTHRITIS
     Route: 058
     Dates: start: 2003, end: 20121001
  2. HUMIRA [Suspect]
     Route: 058
     Dates: start: 20121203
  3. SHINGLES VACCINE [Suspect]
     Indication: PROPHYLAXIS
     Dates: start: 20121003, end: 20121003
  4. SHINGLES VACCINE [Suspect]
     Indication: HERPES ZOSTER
  5. FLU VACCINE [Suspect]
     Indication: ANTIVIRAL PROPHYLAXIS
     Dates: start: 20121122, end: 20121122
  6. LISINOPRIL [Concomitant]
     Indication: PRODUCT USED FOR UNKNOWN INDICATION
  7. ZOCOR [Concomitant]
     Indication: PRODUCT USED FOR UNKNOWN INDICATION
  8. TRAMADOL [Concomitant]
     Indication: PRODUCT USED FOR UNKNOWN INDICATION
  9. TEMAZEPAM [Concomitant]
     Indication: PRODUCT USED FOR UNKNOWN INDICATION

REACTIONS (11)
  - Contraindication to vaccination [Unknown]
  - Influenza [Recovered/Resolved]
  - Chills [Recovered/Resolved]
  - Pyrexia [Recovered/Resolved]
  - Pruritus [Not Recovered/Not Resolved]
  - Rash [Recovered/Resolved]
  - Rash [Not Recovered/Not Resolved]
  - Influenza [Recovering/Resolving]
  - Upper respiratory tract infection [Recovering/Resolving]
  - Rash erythematous [Recovered/Resolved]
  - Pruritus [Unknown]
